FAERS Safety Report 6176193-5 (Version None)
Quarter: 2009Q2

REPORT INFORMATION
  Report Type: 
  Country: None (occurrence: None)
  Receive Date: 20090501
  Receipt Date: 20090415
  Transmission Date: 20091009
  Serious: Yes (Disabling, Other)
  Sender: FDA-Public Use
  Company Number: CA-ROCHE-583952

PATIENT
  Sex: Female
  Weight: 70 kg

DRUGS (8)
  1. XELODA [Suspect]
     Dosage: STRENGTH 150 AND 500 MG TABLETS, A FEW WEEKS OFF IN OCTOBER 2008 AND RESTARTED;BREAK IN WEEK 5APR09
     Route: 048
     Dates: start: 20080201, end: 20090405
  2. EFFEXOR [Suspect]
     Indication: DEPRESSION
     Dosage: OTHER INDICATION - MENOPAUSAL SYMPTOMS.
     Route: 048
  3. EFFEXOR [Suspect]
     Dosage: STRENGTH: 75 MG, DOSAGE INCREASED
     Route: 048
     Dates: start: 20080804, end: 20080820
  4. EFFEXOR [Suspect]
     Dosage: STRENGTH: 37.5 MG, GRADUALLY DECREASED
     Route: 048
     Dates: start: 20080820
  5. KEPPRA [Suspect]
     Dosage: STOP DATE: 2009
     Route: 048
     Dates: start: 20081201
  6. KEPPRA [Suspect]
     Dosage: START DATE: 2009
     Route: 048
  7. ATIVAN [Suspect]
     Indication: DRUG USE FOR UNKNOWN INDICATION
     Route: 065
  8. HERCEPTIN [Concomitant]
     Dosage: FORMULATION VIAL.
     Route: 042
     Dates: start: 20070101

REACTIONS (11)
  - ANXIETY [None]
  - CONVULSION [None]
  - DIARRHOEA [None]
  - DIZZINESS [None]
  - GAIT DISTURBANCE [None]
  - LUNG DISORDER [None]
  - ONYCHOLYSIS [None]
  - PALMAR-PLANTAR ERYTHRODYSAESTHESIA SYNDROME [None]
  - SUICIDAL IDEATION [None]
  - THYROID DISORDER [None]
  - TREMOR [None]
